FAERS Safety Report 25264235 (Version 1)
Quarter: 2025Q2

REPORT INFORMATION
  Report Type: Spontaneous
  Country: US (occurrence: US)
  Receive Date: 20250502
  Receipt Date: 20250502
  Transmission Date: 20250717
  Serious: No
  Sender: TEVA
  Company Number: US-TEVA-VS-3324333

PATIENT
  Age: 81 Year
  Sex: Male

DRUGS (3)
  1. METOPROLOL SUCCINATE [Suspect]
     Active Substance: METOPROLOL SUCCINATE
     Indication: Supraventricular tachycardia
     Route: 048
     Dates: start: 20250408
  2. METOPROLOL SUCCINATE [Suspect]
     Active Substance: METOPROLOL SUCCINATE
     Indication: Supraventricular tachycardia
     Route: 048
     Dates: start: 20250401
  3. METOPROLOL SUCCINATE [Suspect]
     Active Substance: METOPROLOL SUCCINATE
     Indication: Supraventricular tachycardia
     Route: 048
     Dates: start: 202504

REACTIONS (12)
  - Somnolence [Not Recovered/Not Resolved]
  - Asthenia [Recovered/Resolved]
  - Brain fog [Unknown]
  - Dizziness [Recovered/Resolved]
  - Eye swelling [Recovered/Resolved]
  - Product use in unapproved indication [Unknown]
  - Dyspnoea [Recovered/Resolved]
  - Product quality issue [Unknown]
  - Drug intolerance [Unknown]
  - Drug ineffective [Unknown]
  - Headache [Unknown]
  - Hypertension [Unknown]

NARRATIVE: CASE EVENT DATE: 20250401
